FAERS Safety Report 7306826-9 (Version None)
Quarter: 2011Q1

REPORT INFORMATION
  Report Type: 
  Country: None (occurrence: None)
  Receive Date: 20110223
  Receipt Date: 20101228
  Transmission Date: 20110831
  Serious: Yes (Death, Hospitalization, Other)
  Sender: FDA-Public Use
  Company Number: JP-SHIRE-SPV1-2010-02141

PATIENT
  Age: 77 Year
  Sex: Male

DRUGS (15)
  1. FOSRENOL [Suspect]
     Dosage: 750 MG, 1X/DAY:QD
     Dates: start: 20090601
  2. ANPLAG [Concomitant]
     Indication: ARTERIOSCLEROSIS OBLITERANS
     Dosage: 300 MG, UNKNOWN
     Route: 048
     Dates: start: 20100705, end: 20100816
  3. MEXITIL [Concomitant]
     Indication: ATRIAL FIBRILLATION
     Dosage: 300 MG, UNKNOWN
     Route: 048
     Dates: start: 20080328, end: 20100816
  4. ZYLORIC [Concomitant]
     Indication: HYPERURICAEMIA
     Dosage: 50 MG, UNKNOWN
     Route: 048
     Dates: start: 20090213, end: 20100522
  5. DOPS [Concomitant]
     Indication: HYPOTENSION
     Dosage: UNK UNK, UNKNOWN
     Route: 048
     Dates: start: 20090603, end: 20100816
  6. VASOLAN                            /00014302/ [Concomitant]
     Indication: ATRIAL FIBRILLATION
     Dosage: 240 MG, UNKNOWN
     Route: 048
     Dates: start: 20080328, end: 20100816
  7. AMLODIPINE [Concomitant]
     Indication: HYPERTENSION
     Dosage: 5 MG, UNKNOWN
     Route: 048
     Dates: start: 20091118, end: 20100816
  8. PURSENNID                          /00571902/ [Concomitant]
     Indication: CONSTIPATION
     Dosage: 48 MG, UNKNOWN
     Route: 048
     Dates: end: 20100816
  9. RISUMIC [Concomitant]
     Indication: HYPOTENSION
     Dosage: UNK
     Route: 048
     Dates: start: 20081210, end: 20100816
  10. PRORENAL [Concomitant]
     Indication: ARTERIOSCLEROSIS OBLITERANS
     Dosage: 30 ?G, UNKNOWN
     Route: 048
     Dates: start: 20100222, end: 20100816
  11. WARFARIN SODIUM [Concomitant]
     Indication: ATRIAL FIBRILLATION
     Dosage: 1 MG, UNKNOWN
     Route: 048
     Dates: start: 20080328, end: 20100816
  12. FOSRENOL [Suspect]
     Indication: HYPERPHOSPHATAEMIA
     Dosage: 1500 MG, 1X/DAY:QD
     Dates: start: 20090610, end: 20100816
  13. BLOOD CELLS, PACKED HUMAN [Concomitant]
     Dosage: 2 IU, UNKNOWN
     Route: 042
     Dates: start: 20101013, end: 20101013
  14. TAKEPRON [Concomitant]
     Indication: GASTRIC ULCER
     Dosage: 15 MG, UNKNOWN
     Route: 048
     Dates: start: 20080718, end: 20100816
  15. BLOOD CELLS, PACKED HUMAN [Concomitant]
     Indication: ANAEMIA
     Dosage: 2 IU, UNKNOWN
     Route: 042
     Dates: start: 20100927, end: 20100927

REACTIONS (4)
  - LARGE INTESTINAL ULCER [None]
  - WRONG TECHNIQUE IN DRUG USAGE PROCESS [None]
  - SEPTIC SHOCK [None]
  - EMPHYSEMA [None]
